FAERS Safety Report 7656861-6 (Version None)
Quarter: 2011Q3

REPORT INFORMATION
  Report Type: 
  Country: None (occurrence: None)
  Receive Date: 20110802
  Receipt Date: 20110718
  Transmission Date: 20111222
  Serious: Yes (Death, Other)
  Sender: FDA-Public Use
  Company Number: 1000021560

PATIENT
  Age: 81 Year
  Sex: Male

DRUGS (4)
  1. AVELOX [Concomitant]
  2. ALDACTONE [Concomitant]
  3. PREDNISONE (PREDNISON) [Concomitant]
  4. ROFLUMILAST (ROFLUMILAST) (TABLETS) [Suspect]
     Dates: start: 20110411, end: 20110418

REACTIONS (10)
  - DIARRHOEA [None]
  - FALL [None]
  - FATIGUE [None]
  - HAEMOPTYSIS [None]
  - DECREASED APPETITE [None]
  - BLOOD PRESSURE DECREASED [None]
  - DYSPNOEA [None]
  - LACERATION [None]
  - ELECTROLYTE IMBALANCE [None]
  - ABDOMINAL PAIN [None]
